FAERS Safety Report 9022130 (Version 2)
Quarter: 2013Q1

REPORT INFORMATION
  Report Type: Spontaneous
  Country: DE (occurrence: DE)
  Receive Date: 20130118
  Receipt Date: 20130201
  Transmission Date: 20140127
  Serious: Yes (Other)
  Sender: FDA-Public Use
  Company Number: PHHY2013DE004662

PATIENT
  Sex: Female

DRUGS (2)
  1. GILENYA [Suspect]
     Indication: MULTIPLE SCLEROSIS
     Dosage: 0.5 MG, DAILY
     Route: 048
     Dates: start: 20121001, end: 20130115
  2. GILENYA [Suspect]
     Dosage: 0.5 MG, DAILY
     Route: 048
     Dates: start: 20130123

REACTIONS (6)
  - Peripheral vascular disorder [Not Recovered/Not Resolved]
  - Skin discolouration [Not Recovered/Not Resolved]
  - Peripheral coldness [Not Recovered/Not Resolved]
  - Local swelling [Not Recovered/Not Resolved]
  - Erythema [Not Recovered/Not Resolved]
  - Hepatic enzyme increased [Not Recovered/Not Resolved]
